FAERS Safety Report 12370478 (Version 1)
Quarter: 2016Q2

REPORT INFORMATION
  Report Type: Not Available
  Country: IR (occurrence: IR)
  Receive Date: 20160516
  Receipt Date: 20160516
  Transmission Date: 20160815
  Serious: Yes (Other)
  Sender: FDA-Public Use
  Company Number: IR-MIDATECHPHARMA-2016-IR-000002

PATIENT
  Age: 52 Year
  Sex: Female

DRUGS (1)
  1. TAMOXIFEN (NON-SPECIFIC) [Suspect]
     Active Substance: TAMOXIFEN
     Dosage: UNKNOWN
     Route: 065

REACTIONS (4)
  - Ocular retrobulbar haemorrhage [Unknown]
  - Exophthalmos [Unknown]
  - Visual acuity reduced [Unknown]
  - Eye pain [Unknown]
